FAERS Safety Report 9017408 (Version 2)
Quarter: 2013Q1

REPORT INFORMATION
  Report Type: Spontaneous
  Country: FR (occurrence: FR)
  Receive Date: 20130117
  Receipt Date: 20130204
  Transmission Date: 20140127
  Serious: Yes (Hospitalization)
  Sender: FDA-Public Use
  Company Number: FR-ASTRAZENECA-2013SE01620

PATIENT
  Age: 641 Day
  Sex: Male

DRUGS (4)
  1. MOPRAL [Suspect]
     Indication: GASTROOESOPHAGEAL REFLUX DISEASE
     Route: 048
     Dates: start: 20121120, end: 20121205
  2. SOLACY [Suspect]
     Indication: RHINITIS
     Route: 048
     Dates: start: 20121120, end: 20121205
  3. PRIMALAN [Suspect]
     Indication: RHINITIS
     Route: 048
     Dates: start: 20121120, end: 20121205
  4. FLIXOTIDE [Concomitant]
     Indication: ASTHMA
     Route: 055
     Dates: start: 20121120

REACTIONS (5)
  - Ear infection [Unknown]
  - Thrombocytopenia [Recovering/Resolving]
  - Autoimmune thrombocytopenia [None]
  - Oral mucosal blistering [None]
  - Otitis media acute [None]
